FAERS Safety Report 9690546 (Version 1)
Quarter: 2013Q4

REPORT INFORMATION
  Report Type: Spontaneous
  Country: US (occurrence: US)
  Receive Date: 20131115
  Receipt Date: 20131115
  Transmission Date: 20140711
  Serious: No
  Sender: FDA-Public Use
  Company Number: US-PFIZER INC-2013326844

PATIENT
  Age: 68 Year
  Sex: Male
  Weight: 95.24 kg

DRUGS (3)
  1. LYRICA [Suspect]
     Indication: NEUROPATHY PERIPHERAL
     Dosage: 75 MG, 1X/DAY
     Dates: start: 201210
  2. LYRICA [Suspect]
     Dosage: 200 MG, 1X/DAY
  3. ASPIRIN [Concomitant]
     Dosage: 81 MG, ALTERNATE DAY

REACTIONS (3)
  - Drug ineffective [Unknown]
  - Pain in extremity [Unknown]
  - Arthralgia [Unknown]
